FAERS Safety Report 7054348-5 (Version None)
Quarter: 2010Q4

REPORT INFORMATION
  Report Type: 
  Country: None (occurrence: None)
  Receive Date: 20101015
  Receipt Date: 20100930
  Transmission Date: 20110411
  Serious: Yes (Hospitalization)
  Sender: FDA-Public Use
  Company Number: 1000016637

PATIENT
  Age: 84 Year
  Sex: Female
  Weight: 55 kg

DRUGS (5)
  1. CITALOPRAM HYDROBROMIDE [Suspect]
     Indication: DEPRESSION
     Dosage: 20 MG (20 MG,1 IN 1 D),ORAL
     Route: 048
     Dates: start: 20100301, end: 20100816
  2. BELOC ZOK MITE(METOPROLOL SUCCINATE) (TABLETS) [Suspect]
     Indication: HYPERTENSION
     Dosage: 95 MG (47.5 MG,2 IN 1 D), ORAL ; 190 MG
     Route: 048
     Dates: start: 20000101, end: 20100903
  3. BELOC ZOK MITE(METOPROLOL SUCCINATE) (TABLETS) [Suspect]
     Indication: HYPERTENSION
     Dosage: 95 MG (47.5 MG,2 IN 1 D), ORAL ; 190 MG
     Route: 048
     Dates: start: 20100904
  4. FALITHROM(PHENPROCOUMON) (TABLETS) [Suspect]
     Indication: ATRIAL FIBRILLATION
     Dosage: 2.78 MG (2.78 MG,1 IN 1 D),ORAL
     Route: 048
     Dates: start: 20100810, end: 20100817
  5. MOLSIDOMINE(MOLSIDOMINE) (TABLETS) (MOLSIDOMINE) [Concomitant]

REACTIONS (10)
  - ATRIAL FIBRILLATION [None]
  - CLOSTRIDIUM TEST POSITIVE [None]
  - CONDITION AGGRAVATED [None]
  - DEHYDRATION [None]
  - DEPRESSION [None]
  - DIARRHOEA HAEMORRHAGIC [None]
  - HELICOBACTER TEST POSITIVE [None]
  - HEPATITIS TOXIC [None]
  - REFLUX OESOPHAGITIS [None]
  - SUICIDAL IDEATION [None]
